FAERS Safety Report 10908720 (Version 1)
Quarter: 2015Q1

REPORT INFORMATION
  Report Type: Spontaneous
  Country: US (occurrence: US)
  Receive Date: 20150312
  Receipt Date: 20150312
  Transmission Date: 20150721
  Serious: No
  Sender: FDA-Public Use
  Company Number: US-PFIZER INC-2015089223

PATIENT

DRUGS (1)
  1. CHANTIX [Suspect]
     Active Substance: VARENICLINE TARTRATE
     Dosage: UNK
     Dates: start: 20140923, end: 2015

REACTIONS (5)
  - Memory impairment [Unknown]
  - Personality change [Unknown]
  - Disorientation [Unknown]
  - Amnesia [Unknown]
  - Grief reaction [Unknown]

NARRATIVE: CASE EVENT DATE: 201502
